FAERS Safety Report 18795205 (Version 2)
Quarter: 2021Q2

REPORT INFORMATION
  Report Type: Spontaneous
  Country: US (occurrence: US)
  Receive Date: 20210127
  Receipt Date: 20210421
  Transmission Date: 20210717
  Serious: No
  Sender: FDA-Public Use
  Company Number: US-PARATEK PHARMACEUTICALS, INC.-2020PTK00279

PATIENT
  Age: 62 Year
  Sex: Female
  Weight: 88.44 kg

DRUGS (13)
  1. CELEBREX [Concomitant]
     Active Substance: CELECOXIB
     Dosage: 200 MG, 1X/DAY
  2. NUZYRA [Suspect]
     Active Substance: OMADACYCLINE
     Indication: MYCOBACTERIUM ABSCESSUS INFECTION
     Dosage: 300 MG, 1X/DAY
     Route: 048
     Dates: start: 202011
  3. ATORVASTATIN [Concomitant]
     Active Substance: ATORVASTATIN
     Dosage: 20 MG, 1X/DAY
  4. NUZYRA [Suspect]
     Active Substance: OMADACYCLINE
     Indication: MASTITIS
  5. LANSOPRAZOLE. [Concomitant]
     Active Substance: LANSOPRAZOLE
     Dosage: 30 MG, 1X/DAY
  6. LOSARTAN. [Concomitant]
     Active Substance: LOSARTAN
     Dosage: 100 MG, 1X/DAY
  7. RESTASIS [Concomitant]
     Active Substance: CYCLOSPORINE
     Dosage: 1 DROP, 1X/DAY IN EACH EYE
     Route: 047
  8. TRESIBA [Concomitant]
     Active Substance: INSULIN DEGLUDEC
     Dosage: 100 U PER DAY
  9. METFORMIN [Concomitant]
     Active Substance: METFORMIN HYDROCHLORIDE
     Dosage: 500 MG, 2X/DAY
  10. VICTOZA [Concomitant]
     Active Substance: LIRAGLUTIDE
     Dosage: 18 MG, 1X/DAY
  11. AZITHROMYCIN ANHYDROUS. [Concomitant]
     Active Substance: AZITHROMYCIN ANHYDROUS
     Dosage: 500 MG, 1X/DAY
  12. NUZYRA [Suspect]
     Active Substance: OMADACYCLINE
     Indication: MYCOBACTERIAL INFECTION
  13. VESICARE [Concomitant]
     Active Substance: SOLIFENACIN SUCCINATE
     Dosage: 10 MG, 1X/DAY

REACTIONS (5)
  - Feeling abnormal [Unknown]
  - Off label use [Recovered/Resolved]
  - Malaise [Unknown]
  - Nausea [Unknown]
  - Vomiting [Unknown]

NARRATIVE: CASE EVENT DATE: 201911
